FAERS Safety Report 7906697-3 (Version None)
Quarter: 2011Q4

REPORT INFORMATION
  Report Type: 
  Country: None (occurrence: None)
  Receive Date: 20111109
  Receipt Date: 20111109
  Transmission Date: 20120403
  Serious: Yes (Other)
  Sender: FDA-Public Use
  Company Number: None

PATIENT
  Age: 74 Year
  Sex: Female
  Weight: 72.5755 kg

DRUGS (1)
  1. LUNESTA [Suspect]
     Indication: INSOMNIA
     Dosage: 2MG 1 IN THE NIGHT
     Dates: start: 20111012

REACTIONS (3)
  - DYSGEUSIA [None]
  - ABASIA [None]
  - ARTHRITIS [None]
